FAERS Safety Report 18113929 (Version 1)
Quarter: 2020Q3

REPORT INFORMATION
  Report Type: Spontaneous
  Country: US (occurrence: US)
  Receive Date: 20200805
  Receipt Date: 20200805
  Transmission Date: 20201103
  Serious: Yes (Life-Threatening, Hospitalization)
  Sender: FDA-Public Use
  Company Number: None

PATIENT
  Age: 77 Year
  Sex: Male

DRUGS (1)
  1. DOFETILIDE (DOFETILIDE 500MCG CAP) [Suspect]
     Active Substance: DOFETILIDE
     Indication: ATRIAL FIBRILLATION
     Route: 048
     Dates: start: 20200205, end: 20200208

REACTIONS (4)
  - Confusional state [None]
  - Syncope [None]
  - Tongue biting [None]
  - Urinary incontinence [None]

NARRATIVE: CASE EVENT DATE: 20200208
